FAERS Safety Report 16028654 (Version 1)
Quarter: 2019Q1

REPORT INFORMATION
  Report Type: Spontaneous
  Country: US (occurrence: US)
  Receive Date: 20190204
  Receipt Date: 20190204
  Transmission Date: 20190418
  Serious: No
  Sender: FDA-Public Use
  Company Number: None

PATIENT
  Age: 34 Year
  Sex: Male

DRUGS (1)
  1. TALTZ [Suspect]
     Active Substance: IXEKIZUMAB
     Dosage: ?          OTHER  ?
     Route: 058
     Dates: start: 20190124

REACTIONS (3)
  - Injection site swelling [None]
  - Injection site erythema [None]
  - Injection site pain [None]

NARRATIVE: CASE EVENT DATE: 20190204
